FAERS Safety Report 4488689-2 (Version None)
Quarter: 2004Q4

REPORT INFORMATION
  Report Type: 
  Country: None (occurrence: None)
  Receive Date: 20041025
  Receipt Date: 20041015
  Transmission Date: 20050328
  Serious: Yes (Other)
  Sender: FDA-Public Use
  Company Number: FR-SHR-04-023376

PATIENT
  Sex: 0

DRUGS (1)
  1. MIRENA [Suspect]
     Dates: end: 20030701

REACTIONS (3)
  - DRUG EXPOSURE DURING PREGNANCY [None]
  - PREMATURE BABY [None]
  - SUBARACHNOID HAEMORRHAGE NEONATAL [None]
